FAERS Safety Report 10468785 (Version 1)
Quarter: 2014Q3

REPORT INFORMATION
  Report Type: Spontaneous
  Country: GB (occurrence: GB)
  Receive Date: 20140923
  Receipt Date: 20140923
  Transmission Date: 20150326
  Serious: Yes (Other)
  Sender: FDA-Public Use
  Company Number: GB-ROCHE-1464353

PATIENT
  Sex: Female

DRUGS (1)
  1. HERCEPTIN [Suspect]
     Active Substance: TRASTUZUMAB
     Indication: PRODUCT USED FOR UNKNOWN INDICATION
     Dosage: LAST TREATMENT WAS ADMINISTERED: ON 28/AUG/2014
     Route: 065

REACTIONS (6)
  - Lethargy [Unknown]
  - Malaise [Unknown]
  - Dizziness [Unknown]
  - Tremor [Unknown]
  - Hypertension [Unknown]
  - Tension headache [Unknown]
